FAERS Safety Report 6193466-0 (Version None)
Quarter: 2009Q2

REPORT INFORMATION
  Report Type: 
  Country: None (occurrence: None)
  Receive Date: 20090514
  Receipt Date: 20090514
  Transmission Date: 20091009
  Serious: No
  Sender: FDA-Public Use
  Company Number: None

PATIENT
  Age: 59 Year
  Sex: Male
  Weight: 89.8122 kg

DRUGS (1)
  1. IBUPROFEN [Suspect]
     Indication: SCIATICA
     Dosage: 600 MG 3-4 X PO
     Route: 048

REACTIONS (1)
  - EPISTAXIS [None]
